FAERS Safety Report 4828855-7 (Version None)
Quarter: 2005Q4

REPORT INFORMATION
  Report Type: 
  Country: None (occurrence: None)
  Receive Date: 20051014
  Receipt Date: 20050708
  Transmission Date: 20060501
  Serious: No
  Sender: FDA-Public Use
  Company Number: 2005SP001808

PATIENT
  Age: 82 Year
  Sex: Female
  Weight: 59.8748 kg

DRUGS (3)
  1. LUNESTA [Suspect]
     Indication: INSOMNIA
     Dosage: 2 MG;HS;ORAL
     Route: 048
     Dates: start: 20050707, end: 20050707
  2. ATENOLOL [Concomitant]
  3. ACTONEL [Concomitant]

REACTIONS (3)
  - ASTHENIA [None]
  - HANGOVER [None]
  - SOMNOLENCE [None]
